FAERS Safety Report 14239729 (Version 1)
Quarter: 2017Q4

REPORT INFORMATION
  Report Type: Spontaneous
  Country: US (occurrence: US)
  Receive Date: 20171128
  Receipt Date: 20171128
  Transmission Date: 20180321
  Serious: No
  Sender: FDA-Public Use
  Company Number: None

PATIENT
  Age: 47 Year
  Sex: Female

DRUGS (1)
  1. IOHEXOL [Suspect]
     Active Substance: IOHEXOL
     Indication: IMAGING PROCEDURE
     Dosage: ?          OTHER FREQUENCY:ONCE;?
     Route: 040

REACTIONS (2)
  - Contrast media reaction [None]
  - Rash [None]

NARRATIVE: CASE EVENT DATE: 20170927
